FAERS Safety Report 12195962 (Version 2)
Quarter: 2016Q2

REPORT INFORMATION
  Report Type: Spontaneous
  Country: US (occurrence: US)
  Receive Date: 20160321
  Receipt Date: 20160428
  Transmission Date: 20160815
  Serious: No
  Sender: FDA-Public Use
  Company Number: US-TOLMAR INC.-1049376

PATIENT
  Sex: Female

DRUGS (1)
  1. CALCIPOTRIENE TOPICAL SOLUTION, 0.005% (SCALP SOLUTION) [Suspect]
     Active Substance: CALCIPOTRIENE
     Indication: PSORIASIS
     Route: 061

REACTIONS (2)
  - Application site pain [Recovered/Resolved]
  - Off label use [None]
